FAERS Safety Report 21163678 (Version 1)
Quarter: 2022Q3

REPORT INFORMATION
  Report Type: Spontaneous
  Country: None (occurrence: CN)
  Receive Date: 20220802
  Receipt Date: 20220802
  Transmission Date: 20221027
  Serious: Yes (Hospitalization)
  Sender: FDA-Public Use
  Company Number: CN-Jiangsu Hengrui Medicine Co., Ltd.-2131471

PATIENT
  Sex: Female

DRUGS (3)
  1. CYCLOPHOSPHAMIDE [Suspect]
     Active Substance: CYCLOPHOSPHAMIDE
     Indication: Systemic lupus erythematosus
  2. PREDNISONE [Suspect]
     Active Substance: PREDNISONE
  3. AZATHIOPRINE [Concomitant]
     Active Substance: AZATHIOPRINE

REACTIONS (12)
  - Dyskinesia [Unknown]
  - Fatigue [Unknown]
  - Limb discomfort [Unknown]
  - Abdominal discomfort [Unknown]
  - Tooth loss [Unknown]
  - Photosensitivity reaction [Unknown]
  - Visual impairment [Unknown]
  - Gout [Unknown]
  - Blood pressure increased [Unknown]
  - Chronic kidney disease [Unknown]
  - Insomnia [Unknown]
  - Product use in unapproved indication [Unknown]
